FAERS Safety Report 25284311 (Version 1)
Quarter: 2025Q2

REPORT INFORMATION
  Report Type: Spontaneous
  Country: US (occurrence: US)
  Receive Date: 20250508
  Receipt Date: 20250508
  Transmission Date: 20250717
  Serious: No
  Sender: TEVA
  Company Number: US-TEVA-VS-3266685

PATIENT
  Age: 56 Year
  Sex: Female
  Weight: 50.07 kg

DRUGS (2)
  1. AUSTEDO XR [Suspect]
     Active Substance: DEUTETRABENAZINE
     Indication: Huntington^s disease
     Dosage: TAKE 2 TABLETS IN THE MORNING AND 2 TABLETS AT BEDTIME
     Route: 048
  2. AUSTEDO XR [Suspect]
     Active Substance: DEUTETRABENAZINE
     Indication: Huntington^s disease
     Dosage: ONE 48MG TABLET AND ONE 12MG TABLET DAILY
     Route: 048

REACTIONS (3)
  - Huntington^s disease [Unknown]
  - Off label use [Unknown]
  - Off label use [Unknown]
